FAERS Safety Report 6479464-8 (Version None)
Quarter: 2009Q4

REPORT INFORMATION
  Report Type: 
  Country: None (occurrence: None)
  Receive Date: 20091208
  Receipt Date: 20091130
  Transmission Date: 20100525
  Serious: Yes (Death, Hospitalization)
  Sender: FDA-Public Use
  Company Number: US-BIOGENIDEC-2005BI013316

PATIENT
  Age: 56 Year
  Sex: Male
  Weight: 97 kg

DRUGS (6)
  1. AVONEX [Suspect]
     Indication: MULTIPLE SCLEROSIS
     Route: 030
     Dates: start: 19990801, end: 20030101
  2. AVONEX [Suspect]
     Route: 030
     Dates: start: 20030101
  3. PROVIGIL [Concomitant]
  4. CLINDAMYCIN [Concomitant]
     Indication: NEOPLASM
  5. ALEVE [Concomitant]
     Indication: PREMEDICATION
  6. CLARITIN-D [Concomitant]
     Indication: PREMEDICATION

REACTIONS (10)
  - ASTHENIA [None]
  - DRUG EFFECT DECREASED [None]
  - DYSPNOEA [None]
  - FALL [None]
  - IMMUNE SYSTEM DISORDER [None]
  - LUNG INFECTION [None]
  - LYMPHOEDEMA [None]
  - MALIGNANT FIBROUS HISTIOCYTOMA METASTATIC [None]
  - POST PROCEDURAL COMPLICATION [None]
  - PULMONARY OEDEMA [None]
